FAERS Safety Report 8351289-8 (Version None)
Quarter: 2012Q2

REPORT INFORMATION
  Report Type: 
  Country: None (occurrence: None)
  Receive Date: 20120510
  Receipt Date: 20110527
  Transmission Date: 20120825
  Serious: No
  Sender: FDA-Public Use
  Company Number: US-TEVA-2011002739

PATIENT
  Sex: Female
  Weight: 93.07 kg

DRUGS (1)
  1. NUVIGIL [Suspect]
     Indication: NARCOLEPSY
     Route: 048
     Dates: start: 20110518, end: 20110522

REACTIONS (7)
  - OEDEMA PERIPHERAL [None]
  - BREAST SWELLING [None]
  - ARTHRALGIA [None]
  - ABDOMINAL DISTENSION [None]
  - HEADACHE [None]
  - FIBROMYALGIA [None]
  - SOMNOLENCE [None]
